FAERS Safety Report 9294043 (Version 1)
Quarter: 2013Q1

REPORT INFORMATION
  Report Type: Spontaneous
  Country: US (occurrence: None)
  Receive Date: 20121214
  Receipt Date: 20121214
  Transmission Date: 20140127
  Serious: Yes (Hospitalization)
  Sender: FDA-Public Use
  Company Number: 1207USA008470

PATIENT
  Age: 56 Year
  Sex: Female

DRUGS (2)
  1. JANUVIA ( SITAGLIPTIN PHOSPHATE) FILM-COATED TABLET, 100 MG [Suspect]
     Indication: DIABETES MELLITUS
     Route: 048
     Dates: end: 20120717
  2. GLIPIZIDE ( GLIPIZIDE) [Concomitant]

REACTIONS (1)
  - Pancreatitis [None]
